FAERS Safety Report 26196155 (Version 2)
Quarter: 2025Q4

REPORT INFORMATION
  Report Type: Spontaneous
  Country: JP (occurrence: JP)
  Receive Date: 20251224
  Receipt Date: 20251225
  Transmission Date: 20260117
  Serious: Yes (Hospitalization)
  Sender: MERCK SHARP & DOHME LLC
  Company Number: JP-009507513-2336525

PATIENT
  Age: 60 Year
  Sex: Female
  Weight: 57.8 kg

DRUGS (8)
  1. KEYTRUDA [Suspect]
     Active Substance: PEMBROLIZUMAB
     Indication: Triple negative breast cancer
     Dosage: 17 COURSES
     Route: 041
     Dates: start: 20240325, end: 202409
  2. KEYTRUDA [Suspect]
     Active Substance: PEMBROLIZUMAB
     Indication: Triple negative breast cancer
     Dosage: 17 COURSES
     Route: 041
     Dates: start: 20250120, end: 20250714
  3. CARBOPLATIN [Suspect]
     Active Substance: CARBOPLATIN
     Indication: Triple negative breast cancer
     Dosage: LAST ADMIN DATE: 2024, TOTAL OF 4 COURSES
     Route: 065
     Dates: start: 20240325
  4. PACLITAXEL [Suspect]
     Active Substance: PACLITAXEL
     Indication: Triple negative breast cancer
     Dosage: LAST ADMIN DATE: 2024, TOTAL OF 4 COURSES
     Route: 065
     Dates: start: 20240325
  5. BEPOTASTINE BESILATE 10 MG [Concomitant]
     Route: 065
  6. MOMETASONE [Concomitant]
     Active Substance: MOMETASONE
     Route: 065
  7. CYCLOPHOSPHAMIDE\DOXORUBICIN [Suspect]
     Active Substance: CYCLOPHOSPHAMIDE\DOXORUBICIN
     Indication: Triple negative breast cancer
     Dosage: LAST ADMIN DATE: 2024, TOTAL OF 4 COURSES
     Route: 065
     Dates: start: 20240624
  8. CYCLOPHOSPHAMIDE\DOXORUBICIN [Suspect]
     Active Substance: CYCLOPHOSPHAMIDE\DOXORUBICIN
     Indication: Triple negative breast cancer
     Dosage: LAST ADMIN DATE: 2024, TOTAL OF 4 COURSES
     Route: 065
     Dates: start: 20240624

REACTIONS (2)
  - Respiratory failure [Recovered/Resolved]
  - Immune-mediated lung disease [Recovering/Resolving]

NARRATIVE: CASE EVENT DATE: 20250101
